FAERS Safety Report 13810450 (Version 4)
Quarter: 2018Q2

REPORT INFORMATION
  Report Type: Report from Study
  Country: US (occurrence: US)
  Receive Date: 20170728
  Receipt Date: 20180502
  Transmission Date: 20180711
  Serious: Yes (Hospitalization, Other)
  Sender: FDA-Public Use
  Company Number: US-ACTELION-A-US2017-157351

PATIENT
  Age: 79 Year
  Sex: Female

DRUGS (9)
  1. SPIRONOLACTONE. [Concomitant]
     Active Substance: SPIRONOLACTONE
  2. VENTOLIN [Concomitant]
     Active Substance: ALBUTEROL SULFATE
  3. ADCIRCA [Concomitant]
     Active Substance: TADALAFIL
  4. CLONAZEPAM. [Concomitant]
     Active Substance: CLONAZEPAM
  5. UPTRAVI [Suspect]
     Active Substance: SELEXIPAG
     Indication: PULMONARY ARTERIAL HYPERTENSION
     Dosage: 200 MCG, BID
     Route: 048
     Dates: start: 20160903, end: 20180321
  6. ELIQUIS [Concomitant]
     Active Substance: APIXABAN
  7. TRACLEER [Suspect]
     Active Substance: BOSENTAN
     Indication: PULMONARY ARTERIAL HYPERTENSION
     Dosage: 125 MG, UNK
     Route: 048
     Dates: start: 20160903, end: 20180420
  8. DEXILANT [Concomitant]
     Active Substance: DEXLANSOPRAZOLE
  9. LEVOTHYROXINE. [Concomitant]
     Active Substance: LEVOTHYROXINE

REACTIONS (5)
  - Condition aggravated [Unknown]
  - Cardiac failure congestive [Unknown]
  - Pleural effusion [Not Recovered/Not Resolved]
  - Heart valve incompetence [Unknown]
  - Liver function test increased [Unknown]

NARRATIVE: CASE EVENT DATE: 20170723
